FAERS Safety Report 5842022-X (Version None)
Quarter: 2008Q3

REPORT INFORMATION
  Report Type: 
  Country: None (occurrence: None)
  Receive Date: 20080812
  Receipt Date: 20080804
  Transmission Date: 20090109
  Serious: Yes (Other)
  Sender: FDA-Public Use
  Company Number: US-JNJCH-2008020431

PATIENT
  Age: 8 Year
  Sex: Male
  Weight: 22.7 kg

DRUGS (1)
  1. LISTERINE SMART RINSE MINT SHIELD [Suspect]
     Indication: DENTAL CARE
     Dosage: TEXT:RECOMMENDED DOSAGE ONCE THIS MORNING
     Route: 048
     Dates: start: 20080804, end: 20080804

REACTIONS (1)
  - PHARYNGEAL OEDEMA [None]
